FAERS Safety Report 6112313-6 (Version None)
Quarter: 2009Q1

REPORT INFORMATION
  Report Type: 
  Country: None (occurrence: None)
  Receive Date: 20090311
  Receipt Date: 20090311
  Transmission Date: 20090719
  Serious: Yes (Life-Threatening, Other)
  Sender: FDA-Public Use
  Company Number: None

PATIENT
  Sex: Female
  Weight: 55.3388 kg

DRUGS (1)
  1. CRESTOR [Suspect]
     Dosage: 5 MG. 1 X DAY
     Dates: start: 20080109, end: 20090119

REACTIONS (7)
  - ANOREXIA [None]
  - GASTROOESOPHAGEAL REFLUX DISEASE [None]
  - MUSCULAR DYSTROPHY [None]
  - MUSCULOSKELETAL STIFFNESS [None]
  - OEDEMA PERIPHERAL [None]
  - OSTEODYSTROPHY [None]
  - RENAL IMPAIRMENT [None]
